FAERS Safety Report 22059865 (Version 1)
Quarter: 2023Q1

REPORT INFORMATION
  Report Type: Spontaneous
  Country: GB (occurrence: GB)
  Receive Date: 20230303
  Receipt Date: 20230303
  Transmission Date: 20230418
  Serious: Yes (Life-Threatening, Other)
  Sender: FDA-Public Use
  Company Number: GB-MHRA-MED-202302201537472040-VBCJM

PATIENT
  Age: 86 Year
  Sex: Male
  Weight: 76 kg

DRUGS (1)
  1. RAMIPRIL [Suspect]
     Active Substance: RAMIPRIL
     Indication: Chronic kidney disease-mineral and bone disorder
     Dosage: 2.5 MG;
     Route: 065
     Dates: start: 20230212, end: 20230213

REACTIONS (1)
  - Anaphylactic reaction [Recovered/Resolved]

NARRATIVE: CASE EVENT DATE: 20230213
